FAERS Safety Report 9160366 (Version 1)
Quarter: 2013Q1

REPORT INFORMATION
  Report Type: Spontaneous
  Country: DK (occurrence: None)
  Receive Date: 20130215
  Receipt Date: 20130215
  Transmission Date: 20140127
  Serious: Yes (Other)
  Sender: FDA-Public Use
  Company Number: 2013MA001140

PATIENT
  Age: 57 Year
  Sex: Female

DRUGS (1)
  1. FEVERALL [Suspect]
     Indication: HYPERPYREXIA
     Route: 048
     Dates: start: 20130101, end: 20130101

REACTIONS (2)
  - Drug hypersensitivity [None]
  - Urticaria [None]
